FAERS Safety Report 9689967 (Version 1)
Quarter: 2013Q4

REPORT INFORMATION
  Report Type: Spontaneous
  Country: US (occurrence: US)
  Receive Date: 20131115
  Receipt Date: 20131115
  Transmission Date: 20140711
  Serious: No
  Sender: FDA-Public Use
  Company Number: US-PFIZER INC-2013324910

PATIENT
  Age: 62 Year
  Sex: Male

DRUGS (11)
  1. NEURONTIN [Suspect]
     Dosage: UNK
  2. GABAPENTIN [Suspect]
     Dosage: UNK
  3. MORPHINE SULFATE [Suspect]
     Dosage: UNK
  4. HALOPERIDOL [Suspect]
     Dosage: UNK
  5. PROMETHAZINE [Suspect]
     Dosage: UNK
  6. HALDOL [Suspect]
     Dosage: UNK
  7. REGLAN [Suspect]
     Dosage: UNK
  8. CODEINE [Suspect]
     Dosage: UNK
  9. FORTAZ [Suspect]
     Dosage: UNK
  10. CODEINE SULFATE [Suspect]
     Dosage: UNK
  11. METOCLOPRAMIDE [Suspect]
     Dosage: UNK

REACTIONS (1)
  - Drug hypersensitivity [Unknown]
